FAERS Safety Report 17744715 (Version 1)
Quarter: 2020Q2

REPORT INFORMATION
  Report Type: Spontaneous
  Country: US (occurrence: US)
  Receive Date: 20200505
  Receipt Date: 20200505
  Transmission Date: 20200714
  Serious: No
  Sender: FDA-Public Use
  Company Number: US-PFIZER INC-2020174234

PATIENT
  Age: 73 Year
  Sex: Male

DRUGS (5)
  1. XTANDI [Suspect]
     Active Substance: ENZALUTAMIDE
     Indication: BONE CANCER
     Dosage: 160 MG, 1X/DAY
     Route: 048
     Dates: start: 20191101
  2. HYDROCODONE BITARTRATE AND ACETAMINOPHEN [Concomitant]
     Active Substance: ACETAMINOPHEN\HYDROCODONE BITARTRATE
     Dosage: UNK
  3. MORPHINE SULFATE. [Suspect]
     Active Substance: MORPHINE SULFATE
     Dosage: 60 MG
  4. QUETIAPINE. [Concomitant]
     Active Substance: QUETIAPINE
     Dosage: 300 MG
  5. RANITIDE [Concomitant]
     Dosage: 150 MG

REACTIONS (2)
  - Fatigue [Not Recovered/Not Resolved]
  - Aphonia [Unknown]
